FAERS Safety Report 25054907 (Version 1)
Quarter: 2025Q1

REPORT INFORMATION
  Report Type: Spontaneous
  Country: GR (occurrence: GR)
  Receive Date: 20250308
  Receipt Date: 20250308
  Transmission Date: 20250409
  Serious: Yes (Hospitalization, Other)
  Sender: QUAGEN PHARMACEUTICALS
  Company Number: GR-QUAGEN-2025QUALIT00266

PATIENT
  Sex: Female

DRUGS (3)
  1. VALPROIC ACID [Suspect]
     Active Substance: VALPROIC ACID
     Indication: Foetal exposure during pregnancy
     Route: 064
  2. ARIPIPRAZOLE [Suspect]
     Active Substance: ARIPIPRAZOLE
     Indication: Foetal exposure during pregnancy
     Route: 064
  3. DIAZEPAM [Suspect]
     Active Substance: DIAZEPAM
     Indication: Foetal exposure during pregnancy
     Route: 064

REACTIONS (11)
  - Foetal anticonvulsant syndrome [Unknown]
  - Hypothyroidism [Unknown]
  - Syndactyly [Unknown]
  - Choroidal coloboma [Unknown]
  - Deafness [Unknown]
  - Dysmorphism [Unknown]
  - Hypotonia [Unknown]
  - Motor developmental delay [Unknown]
  - Astigmatism [Unknown]
  - Neurodevelopmental delay [Unknown]
  - Foetal exposure during pregnancy [Unknown]
